FAERS Safety Report 8159225-4 (Version None)
Quarter: 2012Q1

REPORT INFORMATION
  Report Type: 
  Country: None (occurrence: None)
  Receive Date: 20120223
  Receipt Date: 20120214
  Transmission Date: 20120608
  Serious: Yes (Other)
  Sender: FDA-Public Use
  Company Number: IT-JNJFOC-20120207799

PATIENT
  Age: 22 Year
  Sex: Female

DRUGS (6)
  1. HALOPERIDOL [Suspect]
     Indication: PRODUCT USED FOR UNKNOWN INDICATION
     Route: 048
     Dates: start: 20120214
  2. HALOPERIDOL [Suspect]
     Route: 048
  3. ACETAMINOPHEN AND TRAMADOL HCL [Suspect]
     Indication: SELF INJURIOUS BEHAVIOUR
     Route: 048
     Dates: start: 20120214, end: 20120214
  4. ALCOHOL [Suspect]
     Indication: SELF INJURIOUS BEHAVIOUR
     Dates: start: 20120214, end: 20120214
  5. MIRTAZAPINE [Suspect]
     Indication: SELF INJURIOUS BEHAVIOUR
     Route: 048
     Dates: start: 20120214, end: 20120214
  6. LORAZEPAM [Suspect]
     Indication: SELF INJURIOUS BEHAVIOUR
     Route: 065
     Dates: start: 20120214, end: 20120214

REACTIONS (2)
  - SELF INJURIOUS BEHAVIOUR [None]
  - AGITATION [None]
